FAERS Safety Report 8460437 (Version 3)
Quarter: 2014Q2

REPORT INFORMATION
  Report Type: Spontaneous
  Country: US (occurrence: US)
  Receive Date: 20120315
  Receipt Date: 20140617
  Transmission Date: 20141212
  Serious: No
  Sender: FDA-Public Use
  Company Number: US-PFIZER INC-2012065073

PATIENT
  Age: 57 Year
  Sex: Female
  Weight: 56.69 kg

DRUGS (2)
  1. ADVIL [Suspect]
     Indication: BACK PAIN
     Dosage: 400 MG (TWO CAPSULES OF 200 MG), DAILY
     Route: 048
     Dates: start: 20120311, end: 20120312
  2. RED YEAST RICE [Concomitant]
     Dosage: UNK

REACTIONS (2)
  - Drug ineffective [Unknown]
  - Nausea [Recovering/Resolving]
